FAERS Safety Report 16202127 (Version 1)
Quarter: 2019Q2

REPORT INFORMATION
  Report Type: Spontaneous
  Country: NL (occurrence: NL)
  Receive Date: 20190416
  Receipt Date: 20190416
  Transmission Date: 20190711
  Serious: Yes (Other)
  Sender: FDA-Public Use
  Company Number: NL-ACTELION-A-CH2019-188314

PATIENT
  Age: 64 Year
  Sex: Male

DRUGS (3)
  1. MYCOPHENOLATE MOFETIL. [Suspect]
     Active Substance: MYCOPHENOLATE MOFETIL
     Indication: SYSTEMIC SCLERODERMA
     Route: 065
  2. BOSENTAN. [Suspect]
     Active Substance: BOSENTAN
     Indication: SYSTEMIC SCLERODERMA
     Route: 048
  3. ENALAPRIL [Concomitant]
     Active Substance: ENALAPRIL

REACTIONS (6)
  - Skin fibrosis [Unknown]
  - Diarrhoea [Unknown]
  - Disease progression [Unknown]
  - Systemic scleroderma [Unknown]
  - Blood pressure increased [Unknown]
  - Arteriosclerosis [Unknown]
